FAERS Safety Report 4282481-X (Version None)
Quarter: 2004Q1

REPORT INFORMATION
  Report Type: 
  Country: None (occurrence: None)
  Receive Date: 20040129
  Receipt Date: 20040121
  Transmission Date: 20041129
  Serious: No
  Sender: FDA-Public Use
  Company Number: 2004UW01083

PATIENT
  Age: 8 Year

DRUGS (1)
  1. PULMICORT [Suspect]
     Dosage: 200 UG BID IH
     Route: 045
     Dates: start: 20020101

REACTIONS (1)
  - CATARACT [None]
